FAERS Safety Report 5693604-X (Version None)
Quarter: 2008Q2

REPORT INFORMATION
  Report Type: 
  Country: None (occurrence: None)
  Receive Date: 20080403
  Receipt Date: 20080325
  Transmission Date: 20081010
  Serious: Yes (Disabling)
  Sender: FDA-Public Use
  Company Number: US-BAXTER-2008BH002886

PATIENT

DRUGS (1)
  1. PHENERGAN [Suspect]
     Indication: DRUG USE FOR UNKNOWN INDICATION
     Dosage: DOSE UNIT:UNKNOWN
     Route: 042
     Dates: start: 20060301, end: 20060301

REACTIONS (5)
  - ANXIETY [None]
  - COMPARTMENT SYNDROME [None]
  - EMOTIONAL DISTRESS [None]
  - INFUSION SITE EXTRAVASATION [None]
  - PAIN [None]
